FAERS Safety Report 9880670 (Version 1)
Quarter: 2014Q1

REPORT INFORMATION
  Report Type: Spontaneous
  Country: US (occurrence: None)
  Receive Date: 20140206
  Receipt Date: 20140206
  Transmission Date: 20141002
  Serious: No
  Sender: FDA-Public Use
  Company Number: None

PATIENT
  Age: 24 Year
  Sex: Female
  Weight: 74.8 kg

DRUGS (1)
  1. ISOVUE 300 [Suspect]
     Indication: COMPUTERISED TOMOGRAM
     Dates: start: 20131126

REACTIONS (4)
  - Sneezing [None]
  - Throat irritation [None]
  - Heart rate increased [None]
  - Medication error [None]
